FAERS Safety Report 20900816 (Version 2)
Quarter: 2024Q2

REPORT INFORMATION
  Report Type: Report from Study
  Country: IE (occurrence: IE)
  Receive Date: 20220601
  Receipt Date: 20240425
  Transmission Date: 20240716
  Serious: Yes (Death, Hospitalization, Other)
  Sender: FDA-Public Use
  Company Number: GB-GLAXOSMITHKLINE-IE2022EME084879

PATIENT

DRUGS (2)
  1. MEPOLIZUMAB [Suspect]
     Active Substance: MEPOLIZUMAB
     Indication: Asthma
     Dosage: 100 MG
     Dates: start: 20220208
  2. MEPOLIZUMAB [Suspect]
     Active Substance: MEPOLIZUMAB
     Dosage: 40 MG
     Dates: start: 20220208

REACTIONS (4)
  - Death [Fatal]
  - Pneumonia [Recovering/Resolving]
  - Dyspnoea [Unknown]
  - Aphasia [Unknown]

NARRATIVE: CASE EVENT DATE: 20220401
